FAERS Safety Report 9454408 (Version 1)
Quarter: 2013Q3

REPORT INFORMATION
  Report Type: Spontaneous
  Country: US (occurrence: US)
  Receive Date: 20130812
  Receipt Date: 20130812
  Transmission Date: 20140515
  Serious: Yes (Hospitalization)
  Sender: FDA-Public Use
  Company Number: US-GILEAD-2013-0081189

PATIENT
  Sex: Female

DRUGS (1)
  1. LETAIRIS [Suspect]
     Indication: PRODUCT USED FOR UNKNOWN INDICATION
     Dosage: 10 MG, QD
     Route: 048
     Dates: start: 20080701

REACTIONS (12)
  - Diarrhoea [Unknown]
  - Nausea [Unknown]
  - Vomiting [Unknown]
  - Unevaluable event [Unknown]
  - Neck pain [Unknown]
  - Chest pain [Unknown]
  - Exercise tolerance decreased [Unknown]
  - Cough [Unknown]
  - Pulmonary function test decreased [Unknown]
  - Dizziness [Unknown]
  - Oedema [Unknown]
  - Fatigue [Unknown]
